FAERS Safety Report 21451250 (Version 2)
Quarter: 2022Q4

REPORT INFORMATION
  Report Type: Spontaneous
  Country: US (occurrence: US)
  Receive Date: 20221013
  Receipt Date: 20221107
  Transmission Date: 20230113
  Serious: No
  Sender: FDA-Public Use
  Company Number: US-BIOVITRUM-2022US10682

PATIENT
  Age: 61 Year
  Sex: Female

DRUGS (2)
  1. KINERET [Suspect]
     Active Substance: ANAKINRA
     Indication: Monoclonal gammopathy
     Dates: start: 201906
  2. KINERET [Suspect]
     Active Substance: ANAKINRA
     Dates: start: 20190605

REACTIONS (3)
  - Hypertension [Unknown]
  - Aortic aneurysm [Unknown]
  - Off label use [Not Recovered/Not Resolved]

NARRATIVE: CASE EVENT DATE: 20190605
